FAERS Safety Report 7579492-5 (Version None)
Quarter: 2011Q2

REPORT INFORMATION
  Report Type: 
  Country: None (occurrence: None)
  Receive Date: 20110629
  Receipt Date: 20101215
  Transmission Date: 20111010
  Serious: Yes (Death, Hospitalization, Other)
  Sender: FDA-Public Use
  Company Number: US-BAYER-200940700NA

PATIENT
  Age: 47 Year
  Sex: Female
  Weight: 120.18 kg

DRUGS (38)
  1. TRASYLOL [Suspect]
     Dosage: 200 ML, (PRIME DRUGS)
     Route: 042
     Dates: start: 20061208
  2. ESTROGENIC SUBSTANCE [Concomitant]
     Dosage: 0.3 MG DAILY
     Route: 048
  3. REGLAN [Concomitant]
     Dosage: 5 MG
     Route: 048
  4. HEPARIN [Concomitant]
     Dosage: 60,000 UNITS
     Route: 042
     Dates: start: 20061208, end: 20061208
  5. TOPROL-XL [Concomitant]
     Dosage: 13 MG, ^LONG TERM USE^
     Route: 048
  6. ALBUMIN (HUMAN) [Concomitant]
     Dosage: 50 ML, (PUMP PRIME)
     Dates: start: 20061208, end: 20061208
  7. TRASYLOL [Suspect]
     Dosage: 199 ML (LOADING DOSE PER ANESTHESIA)
     Route: 042
     Dates: start: 20061208, end: 20061208
  8. VASOPRESSIN [Concomitant]
     Dosage: UNK (TITRATE)
     Route: 042
     Dates: start: 20061208, end: 20061208
  9. FRESH FROZEN PLASMA [Concomitant]
     Dosage: 2 U, UNK
     Route: 042
     Dates: start: 20061208, end: 20061208
  10. TRASYLOL [Suspect]
     Dosage: 50 ML/HR (INFUSION DOSE PER ANESTHESIA)
     Route: 042
     Dates: start: 20061208, end: 20061208
  11. CALCIUM ACETATE [Concomitant]
     Dosage: 667 MG THREE TIMES A DAY
  12. PERCOCET [Concomitant]
     Dosage: AS NEEDED
  13. MANNITOL [Concomitant]
     Dosage: 25 G (PUMP PRIME)
     Dates: start: 20061208, end: 20061208
  14. NORVASC [Concomitant]
     Dosage: 10 MG, ^LONG TERM USE^
     Route: 048
  15. DOPAMINE HCL [Concomitant]
     Dosage: UNK, TITRATE
     Route: 042
     Dates: start: 20061208, end: 20061208
  16. NORCURON [Concomitant]
     Dosage: 15 MG, UNK
     Route: 042
     Dates: start: 20061208, end: 20061208
  17. LEVAQUIN [Concomitant]
     Dosage: 500 MG, UNK
     Route: 042
     Dates: start: 20061208, end: 20061208
  18. TRASYLOL [Suspect]
     Dosage: 1 ML, (INITIAL DOSE PER ANESTHESIA)
     Route: 042
     Dates: start: 20061208, end: 20061208
  19. ANCEF [Concomitant]
     Dosage: 2 G EVERY NIGHT
     Route: 042
  20. PROCRIT [Concomitant]
     Dosage: 20 000 IU, MO, MI, FR
     Route: 058
  21. PHENERGAN HCL [Concomitant]
     Dosage: AS NEEDED
  22. DOPAMINE HCL [Concomitant]
     Dosage: 6 MCG/KG/MIN
     Route: 042
     Dates: start: 20061208
  23. BENADRYL [Concomitant]
     Dosage: 50 MG, UNK
     Route: 042
     Dates: start: 20061208, end: 20061208
  24. SOLU-MEDROL [Concomitant]
     Dosage: 200 MG, UNK
     Route: 042
     Dates: start: 20061208, end: 20061208
  25. AMICAR [Concomitant]
     Dosage: UNK (PUMP PRIME)
     Dates: start: 20061208, end: 20061208
  26. LISINOPRIL [Concomitant]
     Dosage: 20 MG ^LONG TERM USE^
     Route: 048
  27. EPINEPHRINE [Concomitant]
     Dosage: 1 MG/HR, UNK
     Route: 042
     Dates: start: 20061208, end: 20061208
  28. PROTAMINE SULFATE [Concomitant]
     Dosage: 500 MG, UNK
     Route: 042
     Dates: start: 20061208, end: 20061208
  29. TRASYLOL [Suspect]
     Indication: MITRAL VALVE REPLACEMENT
     Dosage: 30,000 KIU (PER BILLING RECORDS)
     Route: 042
     Dates: start: 20061208, end: 20061208
  30. PROTONIX [Concomitant]
     Dosage: 40 MG
     Route: 048
  31. HEPARIN [Concomitant]
     Dosage: 10000 U, (PUMP PRIME)
     Dates: start: 20061208
  32. VERSED [Concomitant]
     Dosage: 10 MG, UNK
     Route: 042
     Dates: start: 20061208, end: 20061208
  33. ASPIRIN [Concomitant]
     Dosage: 81 MG DAILY
     Route: 048
  34. SODIUM BICARBONATE [Concomitant]
     Dosage: 50 MEQ (PUMP PRIME)
     Dates: start: 20061208, end: 20061208
  35. PHOSLO [Concomitant]
     Dosage: UNK, WITH MEALS, ^LONG TERM USE^
     Route: 048
  36. CRYOPRECIPITATES [Concomitant]
     Dosage: 10 U, UNK
     Route: 042
     Dates: start: 20061208, end: 20061208
  37. AMITRIPTYLINE HCL [Concomitant]
     Dosage: 25 MG DAILY
     Route: 048
  38. NOREPINEPHRINE BITARTRATE [Concomitant]
     Dosage: UNK (TITRATE)
     Route: 042
     Dates: start: 20061208, end: 20061208

REACTIONS (15)
  - RENAL IMPAIRMENT [None]
  - ANHEDONIA [None]
  - CONDITION AGGRAVATED [None]
  - FEAR [None]
  - RENAL INJURY [None]
  - MULTI-ORGAN FAILURE [None]
  - STRESS [None]
  - PSYCHIATRIC SYMPTOM [None]
  - DEATH [None]
  - INJURY [None]
  - RENAL FAILURE [None]
  - PAIN [None]
  - EMOTIONAL DISTRESS [None]
  - UNEVALUABLE EVENT [None]
  - ANXIETY [None]
